FAERS Safety Report 4855420-8 (Version None)
Quarter: 2005Q4

REPORT INFORMATION
  Report Type: 
  Country: None (occurrence: None)
  Receive Date: 20051125
  Receipt Date: 20050425
  Transmission Date: 20060501
  Serious: Yes (Disabling)
  Sender: FDA-Public Use
  Company Number: US-JNJFOC-20050105298

PATIENT
  Age: 79 Year
  Sex: Female

DRUGS (5)
  1. LEVAQUIN [Suspect]
     Indication: RESPIRATORY TRACT INFECTION
     Dosage: 500 MG, 1 IN 1 DAY, ORAL
     Route: 048
     Dates: start: 20050114
  2. COUMADIN [Concomitant]
  3. LASIX [Concomitant]
  4. POTASSIUM [Concomitant]
  5. SYNTHROID [Concomitant]

REACTIONS (8)
  - ARTHRALGIA [None]
  - CHEST DISCOMFORT [None]
  - HEADACHE [None]
  - JOINT SWELLING [None]
  - OEDEMA [None]
  - PRURITUS [None]
  - VERTIGO [None]
  - VISION BLURRED [None]
